FAERS Safety Report 4402375-6 (Version None)
Quarter: 2004Q3

REPORT INFORMATION
  Report Type: 
  Country: None (occurrence: None)
  Receive Date: 20040716
  Receipt Date: 20040713
  Transmission Date: 20050211
  Serious: Yes (Other)
  Sender: FDA-Public Use
  Company Number: 001993

PATIENT
  Age: 61 Year
  Sex: Female

DRUGS (4)
  1. MEDROXYPROGESTERONE ACETATE [Suspect]
     Dates: start: 19970721, end: 20020826
  2. PROVERA [Suspect]
     Dates: start: 19970721, end: 20020826
  3. MEDROXYPROGESTERONE ACETATE [Suspect]
     Dates: start: 19961108, end: 19970721
  4. PREMARIN [Suspect]
     Dates: start: 19970721, end: 20020826

REACTIONS (1)
  - BREAST CANCER FEMALE [None]
